FAERS Safety Report 15130739 (Version 1)
Quarter: 2018Q3

REPORT INFORMATION
  Report Type: Spontaneous
  Country: IN (occurrence: IN)
  Receive Date: 20180711
  Receipt Date: 20180711
  Transmission Date: 20181010
  Serious: Yes (Other)
  Sender: FDA-Public Use
  Company Number: IN-MYLANLABS-2018M1049727

PATIENT
  Age: 27 Year
  Sex: Female

DRUGS (1)
  1. METHOTREXATE. [Suspect]
     Active Substance: METHOTREXATE
     Indication: ACUTE LYMPHOCYTIC LEUKAEMIA
     Dosage: 24 CYCLES IN THE INTESNSIVE PHASE FOLLOWED BY MAINTENANCE PHASE THERAPY
     Route: 037

REACTIONS (2)
  - Toxic leukoencephalopathy [Unknown]
  - Treatment failure [Unknown]
